FAERS Safety Report 12984123 (Version 1)
Quarter: 2016Q4

REPORT INFORMATION
  Report Type: Spontaneous
  Country: JP (occurrence: JP)
  Receive Date: 20161129
  Receipt Date: 20161129
  Transmission Date: 20170207
  Serious: Yes (Other)
  Sender: FDA-Public Use
  Company Number: JP-MYLANLABS-2016M1050956

PATIENT

DRUGS (10)
  1. AZATHIOPRINE. [Suspect]
     Active Substance: AZATHIOPRINE
     Indication: LIGHT CHAIN DISEASE
     Dosage: 50 MG DAILY; THEN CHANGED TO 25 MG DAILY
     Route: 065
     Dates: start: 1989
  2. MELPHALAN [Concomitant]
     Active Substance: MELPHALAN
     Indication: LIGHT CHAIN DISEASE
     Dosage: THEN CHANGED TO 4 MG TWICE A WEEK
     Route: 065
     Dates: start: 1991
  3. PREDNISOLONE. [Suspect]
     Active Substance: PREDNISOLONE
     Dosage: THEN CHANGED TO A CYCLE OF 10 MG-0 MG-15 MG-0 MG IN 1999
     Route: 048
     Dates: start: 1996
  4. PREDNISOLONE. [Suspect]
     Active Substance: PREDNISOLONE
     Dosage: TAPERED TO A CYCLE OF 10 MG-0 MG-15 MG-0 MG/DAY
     Route: 048
     Dates: start: 1999
  5. MELPHALAN [Concomitant]
     Active Substance: MELPHALAN
     Dosage: THEN CHANGED TO 2 MG TWICE A WEEK IN 1995
     Route: 065
  6. PREDNISOLONE. [Suspect]
     Active Substance: PREDNISOLONE
     Indication: LIGHT CHAIN DISEASE
     Dosage: THEN CHANGED TO 25MG THRICE A WEEK IN 1996
     Route: 048
     Dates: start: 1989
  7. MELPHALAN [Concomitant]
     Active Substance: MELPHALAN
     Route: 065
     Dates: start: 1995, end: 2001
  8. AZATHIOPRINE. [Suspect]
     Active Substance: AZATHIOPRINE
     Dosage: 25 MG DAILY
     Route: 065
     Dates: start: 1989
  9. BREDININ [Concomitant]
     Active Substance: MIZORIBINE
     Indication: LIGHT CHAIN DISEASE
     Dosage: 25 MG DAILY
     Route: 065
  10. METHYLPREDNISOLONE. [Suspect]
     Active Substance: METHYLPREDNISOLONE
     Indication: LIGHT CHAIN DISEASE
     Route: 048

REACTIONS (4)
  - Kidney fibrosis [Unknown]
  - Renal tubular atrophy [Unknown]
  - Anaemia [Unknown]
  - Glomerulosclerosis [Unknown]
